FAERS Safety Report 5055371-2 (Version None)
Quarter: 2006Q3

REPORT INFORMATION
  Report Type: 
  Country: None (occurrence: None)
  Receive Date: 20060719
  Receipt Date: 20060509
  Transmission Date: 20061208
  Serious: Yes (Life-Threatening, Hospitalization, Other)
  Sender: FDA-Public Use
  Company Number: US-BRISTOL-MYERS SQUIBB COMPANY-13372651

PATIENT
  Age: 75 Year
  Sex: Male

DRUGS (22)
  1. ERBITUX [Suspect]
     Indication: COLORECTAL CANCER
     Dosage: LOADING DOSE OF 900 MG/EVENTS OCCURRED TWO MINUTES INTO THE INFUSION.
     Route: 042
     Dates: start: 20060501, end: 20060501
  2. BENADRYL [Concomitant]
     Indication: PREMEDICATION
  3. ACETAMINOPHEN [Concomitant]
     Indication: PREMEDICATION
  4. ATROPINE [Concomitant]
     Indication: PREMEDICATION
  5. ANZEMET [Concomitant]
  6. CAMPTOSAR [Concomitant]
  7. LEUCOVORIN CALCIUM [Concomitant]
  8. NEURONTIN [Concomitant]
  9. AVASTIN [Concomitant]
  10. DECADRON [Concomitant]
  11. COREG [Concomitant]
  12. LASIX [Concomitant]
  13. ASPIRIN [Concomitant]
  14. GLYBURIDE [Concomitant]
  15. GLUCOPHAGE [Concomitant]
  16. SPIRONOLACTONE [Concomitant]
  17. ACTOS [Concomitant]
  18. BENICAR [Concomitant]
  19. FLUOROURACIL [Concomitant]
  20. LISINOPRIL [Concomitant]
  21. DIGOXIN [Concomitant]
  22. SYNTHROID [Concomitant]

REACTIONS (3)
  - BLOOD PRESSURE ABNORMAL [None]
  - CARDIAC DISORDER [None]
  - COMA [None]
